FAERS Safety Report 9688652 (Version 1)
Quarter: 2013Q4

REPORT INFORMATION
  Report Type: Report from Study
  Country: CA (occurrence: CA)
  Receive Date: 20131114
  Receipt Date: 20131114
  Transmission Date: 20140711
  Serious: Yes (Other)
  Sender: FDA-Public Use
  Company Number: CA-JNJFOC-20131105128

PATIENT
  Sex: Female
  Weight: 78.5 kg

DRUGS (13)
  1. REMICADE [Suspect]
     Indication: RHEUMATOID ARTHRITIS
     Route: 042
     Dates: start: 200807
  2. PREDNISONE [Concomitant]
     Route: 065
  3. SYNTHROID [Concomitant]
     Route: 065
  4. ADALAT [Concomitant]
     Route: 065
  5. AVALIDE [Concomitant]
     Route: 065
  6. ACETYLSALICYLIC ACID [Concomitant]
     Route: 065
  7. PANTOPRAZOLE [Concomitant]
     Route: 065
  8. GRAVOL [Concomitant]
     Route: 065
  9. B COMPLETE [Concomitant]
     Route: 065
  10. METHADONE [Concomitant]
     Route: 065
  11. MORPHINE [Concomitant]
     Route: 065
  12. GLYCOPYRROLATE [Concomitant]
     Route: 065
  13. FUROSEMIDE [Concomitant]
     Route: 065

REACTIONS (2)
  - Device dislocation [Unknown]
  - Bone disorder [Unknown]
